FAERS Safety Report 8344361-X (Version None)
Quarter: 2012Q2

REPORT INFORMATION
  Report Type: 
  Country: None (occurrence: None)
  Receive Date: 20120508
  Receipt Date: 20120425
  Transmission Date: 20120825
  Serious: Yes (Hospitalization, Other)
  Sender: FDA-Public Use
  Company Number: JP-ROCHE-1029577

PATIENT
  Sex: Male
  Weight: 55 kg

DRUGS (8)
  1. TENORMIN [Concomitant]
     Indication: HYPERTENSION
     Route: 048
     Dates: start: 20110101
  2. UBRETID [Concomitant]
     Route: 048
     Dates: start: 20110101
  3. CLONAZEPAM [Suspect]
     Indication: TREMOR
     Dosage: TAKEN IN THE EVENING
     Route: 048
     Dates: start: 20111017, end: 20111027
  4. LANSOPRAZOLE [Concomitant]
     Indication: GASTROOESOPHAGEAL REFLUX DISEASE
     Route: 048
     Dates: start: 20110101
  5. URIEF [Concomitant]
     Indication: BENIGN PROSTATIC HYPERPLASIA
     Route: 048
     Dates: start: 20110101
  6. PREDNISOLONE [Concomitant]
     Indication: GLOMERULONEPHRITIS MINIMAL LESION
     Route: 048
     Dates: start: 20101120
  7. IMIDAPRIL HYDROCHLORIDE [Concomitant]
     Indication: HYPERTENSION
     Route: 048
     Dates: start: 20110101
  8. ROCALTROL [Concomitant]
     Indication: OSTEOPOROSIS
     Route: 048
     Dates: start: 20110101

REACTIONS (4)
  - RENAL FAILURE ACUTE [None]
  - PLATELET COUNT DECREASED [None]
  - DIZZINESS [None]
  - ACUTE HEPATIC FAILURE [None]
